FAERS Safety Report 8567525 (Version 8)
Quarter: 2013Q3

REPORT INFORMATION
  Report Type: Spontaneous
  Country: US (occurrence: US)
  Receive Date: 20120517
  Receipt Date: 20130705
  Transmission Date: 20140515
  Serious: Yes (Hospitalization)
  Sender: FDA-Public Use
  Company Number: US-B.I. PHARMACEUTICALS,INC./RIDGEFIELD-2012-BP-10684BP

PATIENT
  Age: 87 Year
  Sex: Female
  Weight: 43.54 kg

DRUGS (8)
  1. PRADAXA [Suspect]
     Indication: ATRIAL FIBRILLATION
     Dosage: 300 MG
     Route: 048
     Dates: start: 201107, end: 20111207
  2. ALPRAZOLAM [Concomitant]
     Dates: start: 2003
  3. NORVASC [Concomitant]
     Dosage: 6 MG
     Route: 048
     Dates: start: 200907, end: 201203
  4. RYTHMOL [Concomitant]
     Dosage: 450 MG
     Route: 048
     Dates: start: 201110
  5. VITAMIN B12 [Concomitant]
     Dates: start: 2005
  6. OCUTABS [Concomitant]
     Route: 048
     Dates: start: 2011
  7. CALCIUM PLUS D [Concomitant]
     Dosage: 600 MG
     Route: 048
     Dates: start: 2007
  8. BABY ASPIRIN [Concomitant]

REACTIONS (4)
  - Gastrointestinal haemorrhage [Unknown]
  - Haemorrhagic anaemia [Unknown]
  - Syncope [Unknown]
  - Head injury [Unknown]
